FAERS Safety Report 9502713 (Version 1)
Quarter: 2013Q1

REPORT INFORMATION
  Report Type: Spontaneous
  Country: US (occurrence: None)
  Receive Date: 20130225
  Receipt Date: 20130225
  Transmission Date: 20140127
  Serious: Yes (Hospitalization)
  Sender: FDA-Public Use
  Company Number: 2012-210

PATIENT
  Age: 59 Year
  Sex: Male

DRUGS (12)
  1. PRIALT [Suspect]
     Indication: RADICULOPATHY
     Dates: start: 20100519, end: 20120425
  2. PRIALT [Suspect]
     Indication: INTERVERTEBRAL DISC DEGENERATION
     Dates: start: 20100519, end: 20120425
  3. PRIALT [Suspect]
     Indication: POST LAMINECTOMY SYNDROME
     Dates: start: 20100519, end: 20120425
  4. METHADONE [Concomitant]
  5. AMBIEN (ZOLPIDEM TARTRATE) [Concomitant]
  6. DIAZEPAM [Concomitant]
  7. WELLBUTRIN (BUPROPION HYDROCHLORIDE) [Concomitant]
  8. ASTELIN (DIPROPHYLLINE) [Concomitant]
  9. PERCOCET (OXYCODONE HYDROCHLORIDE, OXYCODONE TEREPHTHALATE, PARACETAMOL) [Concomitant]
  10. DIFLUCAN (FLUCONAZOLE) [Concomitant]
  11. NITROQUICK (GLYCERYL TRINITRATE) [Concomitant]
  12. FLOMAX (MORNIFLUMATE) [Concomitant]

REACTIONS (3)
  - Oedema peripheral [None]
  - Formication [None]
  - Paraesthesia [None]
